FAERS Safety Report 6975694-7 (Version None)
Quarter: 2010Q3

REPORT INFORMATION
  Report Type: 
  Country: None (occurrence: None)
  Receive Date: 20100910
  Receipt Date: 20090320
  Transmission Date: 20110219
  Serious: No
  Sender: FDA-Public Use
  Company Number: US-WYE-H08785809

PATIENT
  Sex: Female

DRUGS (4)
  1. PRISTIQ [Suspect]
     Indication: ANXIETY
     Route: 048
     Dates: start: 20081101
  2. PRISTIQ [Suspect]
     Indication: FIBROMYALGIA
  3. BENTYL [Concomitant]
  4. VALIUM [Concomitant]

REACTIONS (3)
  - AGITATION [None]
  - MIDDLE INSOMNIA [None]
  - POOR QUALITY SLEEP [None]
